FAERS Safety Report 16078189 (Version 1)
Quarter: 2019Q2

REPORT INFORMATION
  Report Type: Spontaneous
  Country: US (occurrence: US)
  Receive Date: 20190315
  Receipt Date: 20190315
  Transmission Date: 20190711
  Serious: Yes (Other)
  Sender: FDA-Public Use
  Company Number: None

PATIENT
  Age: 27 Year
  Sex: Female
  Weight: 103.5 kg

DRUGS (5)
  1. RIZATRIPTAN. [Concomitant]
     Active Substance: RIZATRIPTAN
  2. PHENTERMINE. [Concomitant]
     Active Substance: PHENTERMINE
  3. SERTALINE [Concomitant]
     Active Substance: SERTRALINE HYDROCHLORIDE
  4. CYCLOBENZAPRINE. [Concomitant]
     Active Substance: CYCLOBENZAPRINE
  5. EMGALITY [Suspect]
     Active Substance: GALCANEZUMAB-GNLM
     Indication: MIGRAINE
     Dosage: ?          QUANTITY:1 INJECTION(S);OTHER FREQUENCY:ONCE A MONTH;OTHER ROUTE:INJECTION INTO THIGH?
     Dates: start: 20190313

REACTIONS (6)
  - Tenderness [None]
  - Muscle spasms [None]
  - Pruritus generalised [None]
  - Migraine [None]
  - Injection site swelling [None]
  - Back pain [None]

NARRATIVE: CASE EVENT DATE: 20190314
